FAERS Safety Report 23722536 (Version 1)
Quarter: 2024Q2

REPORT INFORMATION
  Report Type: Spontaneous
  Country: ES (occurrence: ES)
  Receive Date: 20240409
  Receipt Date: 20240409
  Transmission Date: 20240715
  Serious: Yes (Other)
  Sender: FDA-Public Use
  Company Number: None

PATIENT
  Age: 55 Year
  Sex: Male

DRUGS (4)
  1. CLONAZEPAM [Suspect]
     Active Substance: CLONAZEPAM
     Indication: Epilepsy
     Dosage: DAILY DOSE: 0.5 MILLIGRAM
     Route: 042
     Dates: start: 20240121, end: 20240121
  2. LEVETIRACETAM [Suspect]
     Active Substance: LEVETIRACETAM
     Indication: Epilepsy
     Dosage: DAILY DOSE: 2 GRAM
     Route: 042
     Dates: start: 20240121
  3. LACOSAMIDE [Suspect]
     Active Substance: LACOSAMIDE
     Indication: Epilepsy
     Dosage: DAILY DOSE: 400 MILLIGRAM
     Route: 042
     Dates: start: 20240122, end: 20240125
  4. LACOSAMIDE [Suspect]
     Active Substance: LACOSAMIDE
     Indication: Epilepsy
     Dosage: 400MG LOADING DOSE, LEAVING A SCHEDULE OF 200MG EVERY 12H
     Dates: start: 20240122

REACTIONS (2)
  - Exfoliative rash [Recovering/Resolving]
  - Eosinophilia [Recovered/Resolved]

NARRATIVE: CASE EVENT DATE: 20240123
